FAERS Safety Report 8338049-9 (Version None)
Quarter: 2012Q2

REPORT INFORMATION
  Report Type: 
  Country: None (occurrence: None)
  Receive Date: 20120504
  Receipt Date: 20120426
  Transmission Date: 20120825
  Serious: Yes (Life-Threatening, Hospitalization, Other)
  Sender: FDA-Public Use
  Company Number: US-PFIZER INC-2012101645

PATIENT
  Age: 43 Year
  Sex: Male

DRUGS (4)
  1. IBUPROFEN TABLETS [Suspect]
     Indication: BACK PAIN
     Dosage: 400 MG EVERY 8 HOURS AS REQUIRED
     Route: 065
  2. CLONIDINE [Suspect]
     Indication: HYPERTENSION
     Dosage: UNK
     Route: 065
  3. SIMVASTATIN [Suspect]
     Indication: DYSLIPIDAEMIA
     Dosage: UNK
     Route: 065
  4. LISINOPRIL [Suspect]
     Indication: HYPERTENSION
     Dosage: UNK
     Route: 065

REACTIONS (4)
  - HEPATIC FAILURE [None]
  - GRANULOMATOUS LIVER DISEASE [None]
  - LIVER DISORDER [None]
  - RENAL TUBULAR NECROSIS [None]
